FAERS Safety Report 7744734-X (Version None)
Quarter: 2011Q3

REPORT INFORMATION
  Report Type: 
  Country: None (occurrence: None)
  Receive Date: 20110912
  Receipt Date: 20110908
  Transmission Date: 20111222
  Serious: No
  Sender: FDA-Public Use
  Company Number: US-BAYER-2011-083902

PATIENT
  Age: 53 Year
  Sex: Male
  Weight: 83.9 kg

DRUGS (4)
  1. ULTRAVIST 150 [Suspect]
     Indication: COMPUTERISED TOMOGRAM ABDOMEN
     Dosage: 95 ML, UNK
     Route: 042
     Dates: start: 20110909, end: 20110909
  2. UNCODEABLE ^UNKNOWN MANUFACTURER^ [Concomitant]
     Indication: COMPUTERISED TOMOGRAM THORAX
  3. UNCODEABLE ^UNKNOWN MANUFACTURER^ [Concomitant]
     Indication: COMPUTERISED TOMOGRAM ABDOMEN
     Dosage: UNK
     Route: 048
     Dates: start: 20110909, end: 20110909
  4. ULTRAVIST 150 [Suspect]
     Indication: COMPUTERISED TOMOGRAM THORAX

REACTIONS (4)
  - DRY THROAT [None]
  - URTICARIA [None]
  - THROAT IRRITATION [None]
  - PRURITUS [None]
